FAERS Safety Report 4715548-X (Version None)
Quarter: 2005Q3

REPORT INFORMATION
  Report Type: 
  Country: None (occurrence: None)
  Receive Date: 20050713
  Receipt Date: 20050708
  Transmission Date: 20060218
  Serious: Yes (Other)
  Sender: FDA-Public Use
  Company Number: 200511129BWH

PATIENT
  Age: 69 Year
  Sex: Female
  Weight: 53.978 kg

DRUGS (1)
  1. AVELOX [Suspect]
     Indication: PNEUMONIA
     Dosage: 800 MG, BID, ORAL
     Route: 048

REACTIONS (5)
  - ABNORMAL FAECES [None]
  - OVERDOSE [None]
  - PAIN [None]
  - RECTAL DISCHARGE [None]
  - RECTAL HAEMORRHAGE [None]
